FAERS Safety Report 5048621-X (Version None)
Quarter: 2006Q3

REPORT INFORMATION
  Report Type: 
  Country: None (occurrence: None)
  Receive Date: 20060705
  Receipt Date: 20060613
  Transmission Date: 20061208
  Serious: Yes (Other)
  Sender: FDA-Public Use
  Company Number: GB200606003260

PATIENT
  Age: 13 Year
  Sex: Male
  Weight: 66.4 kg

DRUGS (5)
  1. STRATTERA [Suspect]
     Indication: ATTENTION DEFICIT/HYPERACTIVITY DISORDER
     Dosage: ORAL
     Route: 048
     Dates: end: 20060523
  2. ACETAMINOPHEN [Concomitant]
  3. PENICILLIN [Concomitant]
  4. TRIAMCINOLONE [Concomitant]
  5. TRIMETHOPRIM [Concomitant]

REACTIONS (6)
  - CONFUSIONAL STATE [None]
  - DISORIENTATION [None]
  - LIVER DISORDER [None]
  - LIVER TENDERNESS [None]
  - MYDRIASIS [None]
  - PARAESTHESIA [None]
